FAERS Safety Report 8894457 (Version 2)
Quarter: 2012Q4

REPORT INFORMATION
  Report Type: Report from Study
  Country: US (occurrence: US)
  Receive Date: 20121108
  Receipt Date: 20121120
  Transmission Date: 20130627
  Serious: Yes (Hospitalization, Other)
  Sender: FDA-Public Use
  Company Number: US-ACTELION-A-US2012-73644

PATIENT
  Age: 77 Year
  Sex: Female

DRUGS (2)
  1. TRACLEER [Suspect]
     Indication: PULMONARY ARTERIAL HYPERTENSION
     Dosage: 62.5 mg, UNK
     Route: 048
  2. COUMADIN [Concomitant]

REACTIONS (4)
  - Dehydration [Recovered/Resolved]
  - Cough [Recovered/Resolved]
  - Renal failure [Recovered/Resolved]
  - Cor pulmonale [Recovered/Resolved]
